FAERS Safety Report 22588683 (Version 1)
Quarter: 2023Q2

REPORT INFORMATION
  Report Type: Spontaneous
  Country: US (occurrence: None)
  Receive Date: 20230608
  Receipt Date: 20230608
  Transmission Date: 20230722
  Serious: Yes (Hospitalization)
  Sender: FDA-Public Use
  Company Number: None

PATIENT
  Sex: Female

DRUGS (2)
  1. TOBI PODHALER [Suspect]
     Active Substance: TOBRAMYCIN
     Indication: Cystic fibrosis
     Dosage: TOBI  FREQUENCY: INHALE THE CONTENTS OF 4 CAPSULES VIA ORAL INHALATION TWICE DAILY FOR 28 DAYS ON, T
     Route: 055
     Dates: start: 202205
  2. CAYSTON [Suspect]
     Active Substance: AZTREONAM
     Dosage: INHALE THE CONTENTS OF 1 VIAL VIA ALTERA NEBULIZER 3 TIMES A DAY FOR 28 DAYS ON AN 28 DAYS OFF.  ?
     Dates: start: 202205

REACTIONS (1)
  - Dyspnoea [None]
